FAERS Safety Report 14904755 (Version 1)
Quarter: 2018Q2

REPORT INFORMATION
  Report Type: Spontaneous
  Country: US (occurrence: US)
  Receive Date: 20180517
  Receipt Date: 20180517
  Transmission Date: 20180711
  Serious: No
  Sender: FDA-Public Use
  Company Number: US-SA-2017SA202442

PATIENT
  Age: 76 Year
  Sex: Female

DRUGS (2)
  1. SOLOSTAR [Suspect]
     Active Substance: DEVICE
  2. LANTUS SOLOSTAR [Suspect]
     Active Substance: INSULIN GLARGINE
     Indication: TYPE 2 DIABETES MELLITUS
     Dosage: DOSE: 8 UNITS IN THE AM AND 3 UNITS IN PM
     Route: 051

REACTIONS (4)
  - Product use issue [Unknown]
  - Blood glucose decreased [Unknown]
  - Unevaluable event [Unknown]
  - Blood glucose increased [Unknown]
